FAERS Safety Report 20832227 (Version 1)
Quarter: 2022Q2

REPORT INFORMATION
  Report Type: 
  Country: None (occurrence: None)
  Receive Date: 20220516
  Receipt Date: 20220516
  Transmission Date: 20220721
  Serious: No
  Sender: FDA-Public Use
  Company Number: CA-002147023-PHHY2018CA079512

PATIENT

DRUGS (10)
  1. XOLAIR [Suspect]
     Active Substance: OMALIZUMAB
     Dosage: 300 MG, EVERY 8 WEEKS
     Dates: start: 20161215
  2. XOLAIR [Suspect]
     Active Substance: OMALIZUMAB
     Dosage: 300 MG, EVERY 6 WEEKS
     Dates: start: 20170302
  3. XOLAIR [Suspect]
     Active Substance: OMALIZUMAB
     Dosage: 300 MG, EVERY 8 WEEKS
     Dates: start: 20180709
  4. XOLAIR [Suspect]
     Active Substance: OMALIZUMAB
     Dosage: 300 MG, EVERY 8 WEEKS
     Dates: start: 20180820
  5. XOLAIR [Suspect]
     Active Substance: OMALIZUMAB
     Dosage: 300 MG, EVERY 8 WEEKS
     Dates: start: 20181001
  6. XOLAIR [Suspect]
     Active Substance: OMALIZUMAB
     Dosage: 300 MG, EVERY 12 WEEKS
     Dates: start: 20161216
  7. XOLAIR [Suspect]
     Active Substance: OMALIZUMAB
     Dosage: 300 MG, (EVERY 12 WEEKS)
  8. XOLAIR [Suspect]
     Active Substance: OMALIZUMAB
     Dosage: 300 MG, (EVERY 12 WEEKS)
  9. EBASTINE [Concomitant]
     Active Substance: EBASTINE
     Dosage: UNK
  10. SPIRONOLACTONE [Concomitant]
     Active Substance: SPIRONOLACTONE
     Dosage: UNK

REACTIONS (6)
  - Anaphylactic reaction [None]
  - Swelling face [None]
  - Lacrimation increased [None]
  - Gait disturbance [None]
  - Inappropriate schedule of product administration [None]
  - Drug ineffective [None]

NARRATIVE: CASE EVENT DATE: 20180101
